FAERS Safety Report 9625579 (Version 2)
Quarter: 2013Q4

REPORT INFORMATION
  Report Type: Spontaneous
  Country: VE (occurrence: VE)
  Receive Date: 20131016
  Receipt Date: 20131025
  Transmission Date: 20140711
  Serious: Yes (Hospitalization, Other)
  Sender: FDA-Public Use
  Company Number: PHHY2013VE115077

PATIENT
  Sex: Male

DRUGS (5)
  1. ONBREZ [Suspect]
     Indication: EMPHYSEMA
     Dosage: UNK
     Dates: start: 2013
  2. FORADILE [Suspect]
     Indication: EMPHYSEMA
     Dosage: 400 MG, DAILY
     Dates: start: 2008
  3. MIFLONIDE [Suspect]
     Indication: EMPHYSEMA
     Dosage: 400 MG, DAILY
     Dates: start: 2012, end: 2012
  4. COZAAR [Concomitant]
     Indication: HYPERTENSION
     Dosage: 50 MG, QD
     Route: 048
     Dates: start: 2007, end: 2007
  5. ADALAT [Concomitant]
     Indication: HYPERTENSION
     Dosage: 30 MG, DAILY
     Route: 048
     Dates: start: 2007, end: 2007

REACTIONS (5)
  - Chest discomfort [Recovered/Resolved]
  - Pneumonia [Recovered/Resolved]
  - Feeling abnormal [Recovered/Resolved]
  - Dermatitis [Not Recovered/Not Resolved]
  - Chest pain [Recovered/Resolved]
